FAERS Safety Report 6580983-4 (Version None)
Quarter: 2010Q1

REPORT INFORMATION
  Report Type: 
  Country: None (occurrence: None)
  Receive Date: 20100215
  Receipt Date: 20100204
  Transmission Date: 20100710
  Serious: Yes (Hospitalization, Other)
  Sender: FDA-Public Use
  Company Number: US-AMGEN-QUU360601

PATIENT
  Sex: Female
  Weight: 80 kg

DRUGS (10)
  1. ENBREL [Suspect]
     Indication: RHEUMATOID ARTHRITIS
     Route: 058
     Dates: start: 20040826, end: 20090501
  2. METHOTREXATE [Concomitant]
  3. CALCIUM [Concomitant]
  4. ATENOLOL [Concomitant]
  5. NORVASC [Concomitant]
  6. ZOCOR [Concomitant]
  7. FORTEO [Concomitant]
     Dates: start: 20081001, end: 20090701
  8. PREDNISONE [Concomitant]
  9. SENNA [Concomitant]
  10. OMEPRAZOLE [Concomitant]

REACTIONS (10)
  - ACTIVITIES OF DAILY LIVING IMPAIRED [None]
  - ASTHENIA [None]
  - FATIGUE [None]
  - FINGER DEFORMITY [None]
  - HAND DEFORMITY [None]
  - LIVER FUNCTION TEST ABNORMAL [None]
  - MENINGIOMA [None]
  - MIXED HYPERLIPIDAEMIA [None]
  - RHEUMATOID ARTHRITIS [None]
  - SOMNOLENCE [None]
